FAERS Safety Report 5930710-6 (Version None)
Quarter: 2008Q4

REPORT INFORMATION
  Report Type: 
  Country: None (occurrence: None)
  Receive Date: 20081009
  Receipt Date: 20080321
  Transmission Date: 20090506
  Serious: Yes (Other)
  Sender: FDA-Public Use
  Company Number: 18793

PATIENT
  Age: 4 Year
  Sex: Male
  Weight: 21.2 kg

DRUGS (7)
  1. METHOTREXATE [Suspect]
     Indication: T-CELL LYMPHOMA
     Dosage: 5 G/M2 ONCE IV
     Route: 042
     Dates: start: 20080310, end: 20080311
  2. LEUCOVORIN CALCIUM [Concomitant]
  3. NAHCO3 [Concomitant]
  4. DOXORUBICIN HCL [Concomitant]
  5. MERCAPTOPUTINE [Concomitant]
  6. VINCRISTINE [Concomitant]
  7. ONDANSETRON [Concomitant]

REACTIONS (1)
  - CHEMOTHERAPEUTIC DRUG LEVEL INCREASED [None]
